FAERS Safety Report 5373407-6 (Version None)
Quarter: 2007Q2

REPORT INFORMATION
  Report Type: 
  Country: None (occurrence: None)
  Receive Date: 20070628
  Receipt Date: 20070620
  Transmission Date: 20071010
  Serious: Yes (Other)
  Sender: FDA-Public Use
  Company Number: US-AVENTIS-200714554US

PATIENT
  Age: 59 Year
  Sex: Female

DRUGS (2)
  1. LOVENOX [Suspect]
     Indication: PROPHYLAXIS
  2. LOVENOX [Suspect]
     Dosage: DOSE: 1.5MG/KG

REACTIONS (2)
  - RENAL FAILURE ACUTE [None]
  - THROMBOSIS [None]
